FAERS Safety Report 8301091-8 (Version None)
Quarter: 2012Q2

REPORT INFORMATION
  Report Type: 
  Country: None (occurrence: None)
  Receive Date: 20120420
  Receipt Date: 20120412
  Transmission Date: 20120825
  Serious: Yes (Disabling)
  Sender: FDA-Public Use
  Company Number: CH-SANOFI-AVENTIS-2012SA025665

PATIENT
  Age: 60 Year
  Sex: Male
  Weight: 67 kg

DRUGS (8)
  1. CARBOPLATIN [Suspect]
     Route: 041
     Dates: start: 20111101
  2. TAXOL [Suspect]
     Route: 041
     Dates: start: 20100309, end: 20110214
  3. ZOMETA [Suspect]
     Indication: BONE NEOPLASM MALIGNANT
     Route: 041
     Dates: start: 20090616, end: 20110101
  4. TAXOTERE [Suspect]
     Route: 041
     Dates: start: 20111101
  5. ZOMETA [Suspect]
     Route: 041
     Dates: start: 20110101, end: 20120209
  6. NEULASTA [Concomitant]
     Route: 058
     Dates: start: 20111101
  7. AVASTIN [Suspect]
     Dosage: FREQUENCY REPORTED AS ONE PER 2 WEEK
     Route: 041
     Dates: start: 20100309, end: 20110214
  8. TRASTUZUMAB [Suspect]
     Route: 041
     Dates: start: 20111101

REACTIONS (1)
  - OSTEONECROSIS [None]
